FAERS Safety Report 16852041 (Version 1)
Quarter: 2019Q3

REPORT INFORMATION
  Report Type: Report from Study
  Country: IT (occurrence: IT)
  Receive Date: 20190925
  Receipt Date: 20190925
  Transmission Date: 20191005
  Serious: Yes (Hospitalization)
  Sender: FDA-Public Use
  Company Number: IT-MYLANLABS-2019M1065021

PATIENT
  Age: 49 Year
  Sex: Female

DRUGS (3)
  1. EN [Suspect]
     Active Substance: DELORAZEPAM
     Indication: ANXIETY
     Dosage: 40 MILLILITER, TOTAL
     Route: 048
     Dates: start: 20190116, end: 20190116
  2. PRAZENE [Suspect]
     Active Substance: PRAZEPAM
     Indication: ANXIETY
     Dosage: 1 DOSAGE FORM, TOTAL
     Route: 048
     Dates: start: 20190116, end: 20190116
  3. LORAZEPAM. [Suspect]
     Active Substance: LORAZEPAM
     Indication: ANXIETY
     Dosage: 10 DOSAGE FORM, TOTAL
     Route: 048
     Dates: start: 20190116, end: 20190116

REACTIONS (3)
  - Drug abuse [Recovered/Resolved]
  - Intentional product misuse [Unknown]
  - Confusional state [Recovered/Resolved]

NARRATIVE: CASE EVENT DATE: 20190116
